FAERS Safety Report 9549249 (Version 1)
Quarter: 2013Q3

REPORT INFORMATION
  Report Type: Spontaneous
  Country: US (occurrence: None)
  Receive Date: 20130923
  Receipt Date: 20130923
  Transmission Date: 20140515
  Serious: Yes (Other)
  Sender: FDA-Public Use
  Company Number: None

PATIENT
  Age: 66 Year
  Sex: Female
  Weight: 63.5 kg

DRUGS (5)
  1. CLARITAN 24 HOUR NON DROWSY [Suspect]
     Indication: SNEEZING
     Dates: start: 20130902, end: 20130902
  2. CLARITAN 24 HOUR NON DROWSY [Suspect]
     Indication: RHINORRHOEA
     Dates: start: 20130902, end: 20130902
  3. CLARITAN 24 HOUR NON DROWSY [Suspect]
     Indication: LACRIMATION INCREASED
     Dates: start: 20130902, end: 20130902
  4. CLARITAN 24 HOUR NON DROWSY [Suspect]
     Indication: EYE PRURITUS
     Dates: start: 20130902, end: 20130902
  5. CLARITAN 24 HOUR NON DROWSY [Suspect]
     Indication: THROAT IRRITATION
     Dates: start: 20130902, end: 20130902

REACTIONS (9)
  - Pruritus [None]
  - Throat irritation [None]
  - Condition aggravated [None]
  - Swelling [None]
  - Asthma [None]
  - Chronic obstructive pulmonary disease [None]
  - Wheezing [None]
  - Dyspnoea [None]
  - Drug dose omission [None]
